FAERS Safety Report 6763775-2 (Version None)
Quarter: 2010Q2

REPORT INFORMATION
  Report Type: 
  Country: None (occurrence: None)
  Receive Date: 20100610
  Receipt Date: 20100531
  Transmission Date: 20101027
  Serious: Yes (Hospitalization)
  Sender: FDA-Public Use
  Company Number: DE-ROCHE-707081

PATIENT
  Age: 57 Year
  Sex: Male

DRUGS (3)
  1. MYCOPHENOLATE MOFETIL [Suspect]
     Dosage: DOSAGE: 2X1 GRAM.
     Route: 065
  2. PREDNISOLONE [Suspect]
     Route: 065
  3. TACROLIMUS [Suspect]
     Dosage: DOSAGE: 2X4 MG.
     Route: 065

REACTIONS (2)
  - MENINGITIS LISTERIA [None]
  - PARTIAL SEIZURES [None]
